FAERS Safety Report 15036501 (Version 5)
Quarter: 2018Q4

REPORT INFORMATION
  Report Type: Report from Study
  Country: JP (occurrence: JP)
  Receive Date: 20180620
  Receipt Date: 20181122
  Transmission Date: 20190204
  Serious: Yes (Life-Threatening, Hospitalization, Other)
  Sender: FDA-Public Use
  Company Number: JP-009507513-1804JPN002392J

PATIENT
  Age: 67 Year
  Sex: Female
  Weight: 38 kg

DRUGS (8)
  1. KEYTRUDA [Suspect]
     Active Substance: PEMBROLIZUMAB
     Indication: TRANSITIONAL CELL CARCINOMA
     Dosage: 200 MG, Q3W
     Route: 041
     Dates: start: 20180202, end: 20180316
  2. LYRICA [Concomitant]
     Active Substance: PREGABALIN
     Indication: TRANSITIONAL CELL CARCINOMA
     Dosage: 2 DF, BID
     Route: 048
     Dates: start: 20180101
  3. NEXIUM [Concomitant]
     Active Substance: ESOMEPRAZOLE MAGNESIUM
     Indication: PROPHYLAXIS
     Dosage: 1 DF, QD
     Route: 048
     Dates: start: 20180101
  4. MAGNESIUM OXIDE. [Concomitant]
     Active Substance: MAGNESIUM OXIDE
     Indication: PROPHYLAXIS
     Dosage: 3 DF, TID
     Route: 048
     Dates: start: 20180101
  5. PREDNISOLONE. [Concomitant]
     Active Substance: PREDNISOLONE
     Dosage: 4 DF, QD
     Route: 048
     Dates: start: 20180101
  6. CALONAL [Concomitant]
     Active Substance: ACETAMINOPHEN
     Indication: TRANSITIONAL CELL CARCINOMA
     Dosage: 12 DF, QID
     Route: 048
     Dates: start: 20180101
  7. NALDEMEDINE TOSYLATE [Concomitant]
     Active Substance: NALDEMEDINE TOSYLATE
     Indication: PROPHYLAXIS
     Dosage: 1 DF, QD
     Route: 048
     Dates: start: 20180101
  8. ZOPICLONE [Concomitant]
     Active Substance: ZOPICLONE
     Indication: PROPHYLAXIS
     Dosage: 1 DF, QD
     Route: 048
     Dates: start: 20180101

REACTIONS (2)
  - Pain [Not Recovered/Not Resolved]
  - Autoimmune colitis [Unknown]

NARRATIVE: CASE EVENT DATE: 20180413
